FAERS Safety Report 6043076-0 (Version None)
Quarter: 2009Q1

REPORT INFORMATION
  Report Type: 
  Country: None (occurrence: None)
  Receive Date: 20090119
  Receipt Date: 20081104
  Transmission Date: 20090719
  Serious: Yes (Other)
  Sender: FDA-Public Use
  Company Number: JP-PFIZER INC-2008094587

PATIENT

DRUGS (1)
  1. PEGVISOMANT [Suspect]
     Indication: ACROMEGALY
     Dosage: 10 MG, 1X/DAY
     Route: 058
     Dates: start: 20071116, end: 20080425

REACTIONS (3)
  - ABDOMINAL PAIN [None]
  - LIVER DISORDER [None]
  - MALAISE [None]
